FAERS Safety Report 19899240 (Version 1)
Quarter: 2021Q3

REPORT INFORMATION
  Report Type: Spontaneous
  Country: US (occurrence: US)
  Receive Date: 20210930
  Receipt Date: 20210930
  Transmission Date: 20211014
  Serious: Yes (Life-Threatening)
  Sender: FDA-Public Use
  Company Number: US-MACLEODS PHARMACEUTICALS US LTD-MAC2021032809

PATIENT

DRUGS (4)
  1. CLOPIDOGREL [Suspect]
     Active Substance: CLOPIDOGREL BISULFATE
     Indication: CORONARY ARTERY DISEASE
     Dosage: UNK
     Route: 065
  2. CLOPIDOGREL [Suspect]
     Active Substance: CLOPIDOGREL BISULFATE
     Indication: CORONARY ARTERIAL STENT INSERTION
  3. METOPROLOL. [Concomitant]
     Active Substance: METOPROLOL
     Indication: HYPERTENSION
     Dosage: 5 MILLIGRAM
     Route: 042
  4. APIXABAN [Suspect]
     Active Substance: APIXABAN
     Indication: ATRIAL FIBRILLATION
     Dosage: UNK
     Route: 065

REACTIONS (8)
  - Dyspnoea [Recovered/Resolved]
  - Haemoglobin decreased [Recovered/Resolved]
  - Haemothorax [Recovered/Resolved]
  - Mediastinal shift [Recovered/Resolved]
  - Haemodynamic instability [Recovered/Resolved]
  - Tachycardia [Recovered/Resolved]
  - Pneumothorax [Recovered/Resolved]
  - Hypotension [Recovered/Resolved]
